FAERS Safety Report 5170272-7 (Version None)
Quarter: 2006Q4

REPORT INFORMATION
  Report Type: 
  Country: None (occurrence: None)
  Receive Date: 20061212
  Receipt Date: 20061013
  Transmission Date: 20070319
  Serious: Yes (Hospitalization)
  Sender: FDA-Public Use
  Company Number: US-BRISTOL-MYERS SQUIBB COMPANY-13540000

PATIENT
  Age: 63 Year
  Sex: Female

DRUGS (23)
  1. CARBOPLATIN [Suspect]
     Indication: NON-SMALL CELL LUNG CANCER
     Route: 042
     Dates: start: 20060703, end: 20060703
  2. PACLITAXEL [Suspect]
     Indication: NON-SMALL CELL LUNG CANCER
     Route: 042
     Dates: start: 20060703, end: 20060703
  3. BLINDED: SORAFENIB [Suspect]
     Indication: NON-SMALL CELL LUNG CANCER
     Route: 048
     Dates: start: 20060704, end: 20060721
  4. FLOVENT [Concomitant]
     Indication: CHRONIC OBSTRUCTIVE PULMONARY DISEASE
     Route: 055
  5. SEREVENT [Concomitant]
     Indication: CHRONIC OBSTRUCTIVE PULMONARY DISEASE
     Route: 055
  6. ALBUTEROL [Concomitant]
     Indication: CHRONIC OBSTRUCTIVE PULMONARY DISEASE
     Route: 055
  7. SPIRIVA [Concomitant]
     Indication: CHRONIC OBSTRUCTIVE PULMONARY DISEASE
     Route: 055
  8. ZOFRAN [Concomitant]
     Indication: PREMEDICATION
     Route: 042
     Dates: start: 20060703, end: 20060703
  9. BENADRYL [Concomitant]
     Indication: PREMEDICATION
     Route: 042
     Dates: start: 20060703, end: 20060703
  10. TAGAMET [Concomitant]
     Indication: PREMEDICATION
     Route: 042
     Dates: start: 20060703, end: 20060703
  11. DECADRON [Concomitant]
     Indication: PREMEDICATION
     Route: 042
     Dates: start: 20060703, end: 20060703
  12. ETODOLAC [Concomitant]
  13. CLONIDINE [Concomitant]
     Indication: HYPERTENSION
  14. ATENOLOL [Concomitant]
     Indication: HYPERTENSION
  15. FOLIC ACID [Concomitant]
     Indication: NUTRITIONAL SUPPORT
  16. SINGULAIR [Concomitant]
  17. NEXIUM [Concomitant]
     Indication: GASTROOESOPHAGEAL REFLUX DISEASE
  18. PERCOCET [Concomitant]
     Route: 048
     Dates: start: 20060518
  19. AMBIEN [Concomitant]
     Indication: INSOMNIA
     Route: 048
     Dates: start: 20060518
  20. DONNATAL [Concomitant]
     Indication: ABDOMINAL DISCOMFORT
     Route: 048
     Dates: start: 20060605
  21. MAGNESIUM [Concomitant]
     Indication: HYPOMAGNESAEMIA
     Route: 048
     Dates: start: 20060628
  22. OXYCONTIN [Concomitant]
     Indication: METASTATIC PAIN
     Route: 048
     Dates: start: 20060710
  23. PROCRIT [Concomitant]
     Indication: ANAEMIA
     Route: 058
     Dates: start: 20060710, end: 20060710

REACTIONS (3)
  - CONSTIPATION [None]
  - FEBRILE NEUTROPENIA [None]
  - ILEUS [None]
